FAERS Safety Report 19959340 (Version 1)
Quarter: 2021Q4

REPORT INFORMATION
  Report Type: Spontaneous
  Country: CN (occurrence: CN)
  Receive Date: 20211015
  Receipt Date: 20211015
  Transmission Date: 20220303
  Serious: Yes (Hospitalization, Other)
  Sender: FDA-Public Use
  Company Number: CN-BAYER-2021A228557

PATIENT
  Age: 48 Year
  Sex: Male
  Weight: 48 kg

DRUGS (2)
  1. STIVARGA [Suspect]
     Active Substance: REGORAFENIB
     Indication: Hepatic cancer
     Dosage: 160 MG, QD
     Route: 048
     Dates: start: 20210911, end: 20210922
  2. CAMRELIZUMAB [Suspect]
     Active Substance: CAMRELIZUMAB
     Indication: Hepatic cancer
     Dosage: 200 MG, Q3WK
     Route: 041
     Dates: start: 20210711, end: 20210920

REACTIONS (11)
  - Urticaria [Recovering/Resolving]
  - Laryngeal obstruction [Recovering/Resolving]
  - Type 2 diabetes mellitus [Recovering/Resolving]
  - Chronic hepatitis B [Recovering/Resolving]
  - Chest discomfort [Recovering/Resolving]
  - Dyspnoea [Recovering/Resolving]
  - Abdominal pain [Recovering/Resolving]
  - Erythema [Recovering/Resolving]
  - Pruritus [Recovering/Resolving]
  - Skin injury [Recovering/Resolving]
  - Scratch [Recovering/Resolving]

NARRATIVE: CASE EVENT DATE: 20210922
